FAERS Safety Report 23393969 (Version 4)
Quarter: 2025Q4

REPORT INFORMATION
  Report Type: Spontaneous
  Country: US (occurrence: US)
  Receive Date: 20240111
  Receipt Date: 20251117
  Transmission Date: 20260118
  Serious: No
  Sender: PHARMING GROUP
  Company Number: US-PHARMING-PHAUS2024000040

PATIENT

DRUGS (4)
  1. RUCONEST [Suspect]
     Active Substance: CONESTAT ALFA
     Indication: Hereditary angioedema
     Dosage: 2100 IU, AS NEEDED
     Route: 042
     Dates: start: 202307
  2. RUCONEST [Suspect]
     Active Substance: CONESTAT ALFA
     Dosage: 2100 IU, PRN
     Route: 042
     Dates: start: 202307
  3. RUCONEST [Suspect]
     Active Substance: CONESTAT ALFA
     Dosage: 2100 IU, PRN
     Route: 042
     Dates: start: 202307
  4. RUCONEST [Suspect]
     Active Substance: CONESTAT ALFA
     Dosage: 2100 IU, AS NEEDED
     Route: 042
     Dates: start: 202307

REACTIONS (3)
  - Weight increased [Unknown]
  - Underdose [Unknown]
  - Product use issue [Unknown]
